FAERS Safety Report 8488658-1 (Version None)
Quarter: 2012Q3

REPORT INFORMATION
  Report Type: 
  Country: None (occurrence: None)
  Receive Date: 20120705
  Receipt Date: 20120629
  Transmission Date: 20120928
  Serious: Yes (Other)
  Sender: FDA-Public Use
  Company Number: BR-PFIZER INC-2012157680

PATIENT
  Age: 70 Year
  Sex: Female
  Weight: 60 kg

DRUGS (8)
  1. HYDROCHLOROTHIAZIDE [Concomitant]
  2. NIFEDIPINE [Concomitant]
  3. CAMPTOSAR [Suspect]
     Indication: COLON CANCER
     Dosage: 546 MG, (INFUSION TIME: 90MINUTES)
     Route: 042
  4. ONDANSETRON [Concomitant]
     Dosage: 8 MG, UNK
     Route: 042
  5. DEXAMETHASONE [Concomitant]
     Dosage: 8 MG, UNK
     Route: 042
  6. DIPIRONA [Concomitant]
  7. ATROPINE [Concomitant]
     Dosage: 0.25 MG, UNK
     Route: 042
  8. CAPTOPRIL [Concomitant]

REACTIONS (7)
  - HAEMATEMESIS [None]
  - ABDOMINAL PAIN [None]
  - HYPERTENSION [None]
  - HYPERSENSITIVITY [None]
  - HYPERHIDROSIS [None]
  - EPISTAXIS [None]
  - RASH [None]
